FAERS Safety Report 7141639-2 (Version None)
Quarter: 2010Q4

REPORT INFORMATION
  Report Type: 
  Country: None (occurrence: None)
  Receive Date: 20101112
  Receipt Date: 20100727
  Transmission Date: 20110411
  Serious: Yes (Other)
  Sender: FDA-Public Use
  Company Number: TIR-00092

PATIENT
  Age: 45 Year
  Sex: Female
  Weight: 53.5244 kg

DRUGS (2)
  1. TIROSINT [Suspect]
     Indication: HYPOTHYROIDISM
     Dosage: 1 CAPSULE DAILY
     Dates: start: 20100601, end: 20100722
  2. HYDROCORTISONE [Concomitant]

REACTIONS (6)
  - EYE PAIN [None]
  - HEADACHE [None]
  - HEPATIC ENZYME INCREASED [None]
  - HEPATIC PAIN [None]
  - NAUSEA [None]
  - VISUAL IMPAIRMENT [None]
